FAERS Safety Report 7810109-8 (Version None)
Quarter: 2011Q4

REPORT INFORMATION
  Report Type: 
  Country: None (occurrence: None)
  Receive Date: 20111012
  Receipt Date: 20111003
  Transmission Date: 20120403
  Serious: Yes (Hospitalization)
  Sender: FDA-Public Use
  Company Number: US-JNJFOC-20110201406

PATIENT
  Sex: Female
  Weight: 48.8 kg

DRUGS (8)
  1. REMICADE [Suspect]
     Indication: CROHN'S DISEASE
     Route: 042
     Dates: start: 20071123, end: 20100525
  2. HUMIRA [Concomitant]
     Route: 058
     Dates: start: 20100101
  3. CALCIUM CARBONATE [Concomitant]
  4. PRILOSEC [Concomitant]
  5. FERROUS SULFATE TAB [Concomitant]
  6. MESALAMINE [Concomitant]
     Route: 048
  7. VITAMIN D [Concomitant]
  8. VITAMIN D [Concomitant]

REACTIONS (1)
  - CELLULITIS [None]
